FAERS Safety Report 6915739-3 (Version None)
Quarter: 2010Q3

REPORT INFORMATION
  Report Type: 
  Country: None (occurrence: None)
  Receive Date: 20100810
  Receipt Date: 20100222
  Transmission Date: 20110219
  Serious: No
  Sender: FDA-Public Use
  Company Number: A0845712A

PATIENT
  Age: 83 Year
  Sex: Female

DRUGS (15)
  1. PAXIL [Suspect]
     Dosage: 25MG PER DAY
     Route: 048
  2. INSULIN [Concomitant]
  3. NEXIUM [Concomitant]
  4. ALDACTONE [Concomitant]
  5. COREG [Concomitant]
  6. K-DUR [Concomitant]
  7. PRAVACHOL [Concomitant]
  8. PLAVIX [Concomitant]
  9. ADVAIR DISKUS 100/50 [Concomitant]
  10. XANAX [Concomitant]
  11. LIDODERM GEL [Concomitant]
  12. NITROGLYCERIN [Concomitant]
  13. ASPIRIN [Concomitant]
  14. DAILY VITAMIN [Concomitant]
  15. ANTIVERT [Concomitant]

REACTIONS (1)
  - DRUG INEFFECTIVE [None]
